FAERS Safety Report 9517900 (Version 1)
Quarter: 2013Q3

REPORT INFORMATION
  Report Type: Spontaneous
  Country: ES (occurrence: None)
  Receive Date: 20130910
  Receipt Date: 20130910
  Transmission Date: 20140515
  Serious: Yes (Other)
  Sender: FDA-Public Use
  Company Number: NGX_01955_2013

PATIENT
  Age: 39 Year
  Sex: Female

DRUGS (1)
  1. QUTENZA [Suspect]
     Indication: NEURALGIA
     Dosage: [PATCH QUARTERLY] TOPICAL)? ?
     Route: 061
     Dates: start: 20130820

REACTIONS (3)
  - Headache [None]
  - Vomiting [None]
  - Somnolence [None]
